FAERS Safety Report 16153605 (Version 2)
Quarter: 2019Q2

REPORT INFORMATION
  Report Type: Spontaneous
  Country: JP (occurrence: JP)
  Receive Date: 20190403
  Receipt Date: 20190406
  Transmission Date: 20190711
  Serious: Yes (Other)
  Sender: FDA-Public Use
  Company Number: JP-ROCHE-2295381

PATIENT
  Age: 43 Year
  Sex: Male

DRUGS (2)
  1. ACTEMRA [Suspect]
     Active Substance: TOCILIZUMAB
     Indication: CASTLEMAN^S DISEASE
     Route: 065
  2. CICLOSPORIN [Concomitant]
     Active Substance: CYCLOSPORINE
     Indication: CASTLEMAN^S DISEASE
     Route: 065

REACTIONS (4)
  - Liver disorder [Unknown]
  - Anuria [Unknown]
  - Off label use [Unknown]
  - Product use in unapproved indication [Unknown]
